FAERS Safety Report 10446902 (Version 1)
Quarter: 2014Q3

REPORT INFORMATION
  Report Type: Spontaneous
  Country: IN (occurrence: IN)
  Receive Date: 20140911
  Receipt Date: 20140911
  Transmission Date: 20150326
  Serious: Yes (Other)
  Sender: FDA-Public Use
  Company Number: IN-SUN PHARMACEUTICAL INDUSTRIES LTD-2014SUN02002

PATIENT

DRUGS (2)
  1. AMLODIPINE BESYLATE 10 MG TABLET [Suspect]
     Active Substance: AMLODIPINE BESYLATE
     Indication: HYPERTENSION
     Dosage: 10 MG, BID
     Route: 065
  2. ATORVASTATIN [Suspect]
     Active Substance: ATORVASTATIN
     Indication: DYSLIPIDAEMIA
     Dosage: 10 MG, OD
     Route: 065

REACTIONS (3)
  - Renal failure acute [Recovering/Resolving]
  - Myopathy [Unknown]
  - Tubulointerstitial nephritis [Recovering/Resolving]
